FAERS Safety Report 5187707-6 (Version None)
Quarter: 2006Q4

REPORT INFORMATION
  Report Type: 
  Country: None (occurrence: None)
  Receive Date: 20061213
  Receipt Date: 20061127
  Transmission Date: 20070319
  Serious: Yes (Hospitalization)
  Sender: FDA-Public Use
  Company Number: 2006002229

PATIENT
  Age: 71 Year
  Sex: Male

DRUGS (7)
  1. ERLOTINIB(TABLET) [Suspect]
     Dosage: (QD), ORAL
     Route: 048
     Dates: start: 20060918, end: 20061109
  2. GEMCITABINE [Suspect]
     Dosage: 1950 MG, INTRAVENOUS
     Route: 042
     Dates: start: 20060904
  3. CARBOPLATIN [Suspect]
     Dosage: 450 MG, INTRAVENOUS
     Route: 042
     Dates: start: 20060904
  4. TRAMADOL HCL [Concomitant]
  5. MULTIVITAMINS NOS (MULTIVITAMINS) [Concomitant]
  6. METOCLOPRAMIDE [Concomitant]
  7. CO AMOXICLAV (AMOXICILLIN W/CLAVULANATE POTASSIUM) [Concomitant]

REACTIONS (1)
  - ANAEMIA [None]
